FAERS Safety Report 4624039-6 (Version None)
Quarter: 2005Q1

REPORT INFORMATION
  Report Type: 
  Country: None (occurrence: None)
  Receive Date: 20050331
  Receipt Date: 20050228
  Transmission Date: 20050727
  Serious: Yes (Hospitalization)
  Sender: FDA-Public Use
  Company Number: PHHO2005NZ03470

PATIENT
  Age: 44 Year
  Sex: Male

DRUGS (7)
  1. CLOZARIL [Suspect]
     Dosage: NOT REPORTED
     Route: 048
     Dates: start: 20031013, end: 20050225
  2. VALPROATE SODIUM [Concomitant]
  3. OMEPRAZOLE [Concomitant]
  4. METOPROLOL TARTRATE [Concomitant]
  5. SIMVASTATIN [Concomitant]
  6. BEZAFIBRATE [Concomitant]
  7. IBUPROFEN [Concomitant]

REACTIONS (7)
  - ABDOMINAL DISTENSION [None]
  - ABDOMINAL PAIN [None]
  - COLONIC PSEUDO-OBSTRUCTION [None]
  - INTESTINAL INFARCTION [None]
  - MEGACOLON [None]
  - NEUTROPENIA [None]
  - VOMITING [None]
